FAERS Safety Report 23658435 (Version 2)
Quarter: 2024Q1

REPORT INFORMATION
  Report Type: Spontaneous
  Country: US (occurrence: US)
  Receive Date: 20240321
  Receipt Date: 20240321
  Transmission Date: 20240409
  Serious: No
  Sender: FDA-Public Use
  Company Number: US-PFIZER INC-PV202400029540

PATIENT
  Age: 32 Year
  Sex: Female
  Weight: 72.57 kg

DRUGS (2)
  1. CLINDAMYCIN PHOSPHATE [Suspect]
     Active Substance: CLINDAMYCIN PHOSPHATE
     Indication: Vulvovaginal mycotic infection
     Dosage: 100 MG
     Route: 067
  2. CLINDAMYCIN PHOSPHATE [Suspect]
     Active Substance: CLINDAMYCIN PHOSPHATE
     Indication: Bacterial vulvovaginitis

REACTIONS (7)
  - Device calibration failure [Unknown]
  - Poor quality device used [Unknown]
  - Overdose [Unknown]
  - Heart rate increased [Unknown]
  - Dizziness [Unknown]
  - Headache [Unknown]
  - Abdominal pain [Unknown]
